FAERS Safety Report 25627796 (Version 1)
Quarter: 2025Q3

REPORT INFORMATION
  Report Type: Spontaneous
  Country: CN (occurrence: CN)
  Receive Date: 20250731
  Receipt Date: 20250731
  Transmission Date: 20251021
  Serious: Yes (Other)
  Sender: NOVARTIS
  Company Number: CN-002147023-NVSC2025CN119282

PATIENT
  Age: 34 Year
  Sex: Female
  Weight: 64.5 kg

DRUGS (1)
  1. TRILEPTAL [Suspect]
     Active Substance: OXCARBAZEPINE
     Indication: Encephalitis
     Dosage: 0.450 G, BID
     Route: 048
     Dates: start: 20250716, end: 20250717

REACTIONS (4)
  - Leukopenia [Recovering/Resolving]
  - Neutrophil count decreased [Unknown]
  - Red blood cell count decreased [Unknown]
  - Platelet count increased [Unknown]

NARRATIVE: CASE EVENT DATE: 20250717
